FAERS Safety Report 5333042-2 (Version None)
Quarter: 2007Q2

REPORT INFORMATION
  Report Type: 
  Country: None (occurrence: None)
  Receive Date: 20070306
  Receipt Date: 20061101
  Transmission Date: 20071010
  Serious: Yes (Other)
  Sender: FDA-Public Use
  Company Number: A03200606642

PATIENT
  Sex: Female

DRUGS (3)
  1. PLAVIX [Suspect]
     Indication: CEREBROVASCULAR ACCIDENT
     Dosage: ORAL
     Route: 048
     Dates: start: 20021220, end: 20051004
  2. PLAVIX [Suspect]
     Indication: MYOCARDIAL INFARCTION
     Dosage: ORAL
     Route: 048
     Dates: start: 20021220, end: 20051004
  3. PLAVIX [Suspect]
     Indication: PROPHYLAXIS
     Dosage: ORAL
     Route: 048
     Dates: start: 20021220, end: 20051004

REACTIONS (1)
  - CEREBROVASCULAR ACCIDENT [None]
